FAERS Safety Report 11152002 (Version 3)
Quarter: 2016Q1

REPORT INFORMATION
  Report Type: Report from Study
  Country: US (occurrence: US)
  Receive Date: 20150601
  Receipt Date: 20160315
  Transmission Date: 20160525
  Serious: Yes (Hospitalization, Other)
  Sender: FDA-Public Use
  Company Number: US-SA-2014SA065650

PATIENT
  Age: 72 Year
  Sex: Female
  Weight: 77.11 kg

DRUGS (7)
  1. SPIRIVA [Concomitant]
     Active Substance: TIOTROPIUM BROMIDE MONOHYDRATE
     Dosage: 1X?2.5 MG
     Dates: start: 201507
  2. LISINOPRIL. [Concomitant]
     Active Substance: LISINOPRIL
     Dosage: 40 MG?1X
     Dates: start: 1999
  3. AUBAGIO [Suspect]
     Active Substance: TERIFLUNOMIDE
     Indication: MULTIPLE SCLEROSIS
     Route: 048
     Dates: start: 20140209
  4. AUBAGIO [Suspect]
     Active Substance: TERIFLUNOMIDE
     Indication: MULTIPLE SCLEROSIS
     Route: 048
     Dates: start: 201403, end: 20150429
  5. METOPROLOL. [Concomitant]
     Active Substance: METOPROLOL
     Dosage: 2 X?50 MG
     Dates: start: 2000
  6. AMLODIPINE [Concomitant]
     Active Substance: AMLODIPINE BESYLATE
     Dosage: 1 X?5 MG
     Dates: start: 201507
  7. ASPIRIN. [Concomitant]
     Active Substance: ASPIRIN
     Dosage: 1 X?81 MG
     Dates: start: 201008

REACTIONS (12)
  - Muscular weakness [Unknown]
  - White blood cell count decreased [Unknown]
  - Ill-defined disorder [Unknown]
  - Reading disorder [Unknown]
  - Rash [Not Recovered/Not Resolved]
  - Pneumonia [Recovered/Resolved]
  - Alopecia [Recovering/Resolving]
  - Upper respiratory tract infection [Not Recovered/Not Resolved]
  - Immune system disorder [Recovered/Resolved]
  - Hair texture abnormal [Unknown]
  - Pruritus [Not Recovered/Not Resolved]
  - Urinary tract infection [Unknown]

NARRATIVE: CASE EVENT DATE: 2014
